FAERS Safety Report 7527454-6 (Version None)
Quarter: 2011Q2

REPORT INFORMATION
  Report Type: 
  Country: None (occurrence: None)
  Receive Date: 20110607
  Receipt Date: 20110525
  Transmission Date: 20111010
  Serious: Yes (Death, Other)
  Sender: FDA-Public Use
  Company Number: JP-BAYER-2011-009369

PATIENT
  Age: 97 Year
  Sex: Male
  Weight: 56 kg

DRUGS (10)
  1. OXYCONTIN [Concomitant]
     Dosage: DAILY DOSE 10 MG
     Route: 048
  2. MAGNESIUM SULFATE [Concomitant]
     Dosage: DAILY DOSE 1980 MG
     Route: 048
  3. NEXAVAR [Suspect]
     Indication: HEPATIC NEOPLASM MALIGNANT
     Dosage: 200 MG, BID
     Route: 048
     Dates: start: 20110114, end: 20110117
  4. AMLODIPINE [Concomitant]
     Dosage: DAILY DOSE 5 MG
     Route: 048
  5. LANSOPRAZOLE [Concomitant]
     Dosage: DAILY DOSE 30 MG
     Route: 048
  6. ADAPTINOL [Concomitant]
     Dosage: DAILY DOSE 15 MG
     Route: 048
  7. NEXAVAR [Suspect]
     Dosage: UNK
     Route: 048
     Dates: start: 20110118, end: 20110202
  8. URSO 250 [Concomitant]
     Dosage: DAILY DOSE 600 MG
     Route: 048
  9. LOXOPROFEN [Concomitant]
     Dosage: DAILY DOSE 180 MG
     Route: 048
  10. LIVACT [Concomitant]
     Dosage: DAILY DOSE 12.45 G
     Route: 048

REACTIONS (2)
  - HEPATIC NEOPLASM MALIGNANT [None]
  - HEPATIC FUNCTION ABNORMAL [None]
